FAERS Safety Report 18668486 (Version 1)
Quarter: 2020Q4

REPORT INFORMATION
  Report Type: Spontaneous
  Country: US (occurrence: US)
  Receive Date: 20201223
  Receipt Date: 20201223
  Transmission Date: 20210114
  Serious: Yes (Hospitalization)
  Sender: FDA-Public Use
  Company Number: None

PATIENT
  Age: 69 Year
  Sex: Female

DRUGS (19)
  1. DOXYCYC MONO [Concomitant]
     Active Substance: DOXYCYCLINE
  2. ELIQUIS [Concomitant]
     Active Substance: APIXABAN
  3. CREON [Concomitant]
     Active Substance: PANCRELIPASE AMYLASE\PANCRELIPASE LIPASE\PANCRELIPASE PROTEASE
  4. LANSOPRAZOLE. [Concomitant]
     Active Substance: LANSOPRAZOLE
  5. PULMOZYME [Suspect]
     Active Substance: DORNASE ALFA
     Indication: PRODUCT USED FOR UNKNOWN INDICATION
     Route: 055
     Dates: start: 20200918
  6. HYDROCHLOROT [Concomitant]
     Active Substance: HYDROCHLOROTHIAZIDE
  7. METOPROL SUC ER [Concomitant]
     Active Substance: METOPROLOL SUCCINATE
  8. PREDNISONE. [Concomitant]
     Active Substance: PREDNISONE
  9. AMITRIPTYLIN [Concomitant]
     Active Substance: AMITRIPTYLINE
  10. OXYCODONE [Concomitant]
     Active Substance: OXYCODONE
  11. DOXYCYCL HYC [Concomitant]
  12. GABAPENTIN. [Concomitant]
     Active Substance: GABAPENTIN
  13. SODIUM CHLOR NEB 7% [Concomitant]
  14. CLINDAMYCIN. [Concomitant]
     Active Substance: CLINDAMYCIN
  15. LOSARTAN POT [Concomitant]
     Active Substance: LOSARTAN POTASSIUM
  16. MOTEGRITY [Concomitant]
     Active Substance: PRUCALOPRIDE SUCCINATE
  17. POT CHLORIDE ER [Concomitant]
  18. ALBUTEROL NEB [Concomitant]
     Active Substance: ALBUTEROL
  19. FLOVENT HFA [Concomitant]
     Active Substance: FLUTICASONE PROPIONATE

REACTIONS (2)
  - Pulmonary function test decreased [None]
  - Pulmonary embolism [None]

NARRATIVE: CASE EVENT DATE: 20200823
